FAERS Safety Report 19906289 (Version 1)
Quarter: 2021Q4

REPORT INFORMATION
  Report Type: Spontaneous
  Country: US (occurrence: US)
  Receive Date: 20211001
  Receipt Date: 20211001
  Transmission Date: 20220304
  Serious: No
  Sender: FDA-Public Use
  Company Number: None

PATIENT
  Age: 80 Year
  Sex: Male
  Weight: 93 kg

DRUGS (1)
  1. BARICITINIB [Suspect]
     Active Substance: BARICITINIB
     Route: 048
     Dates: start: 20210825, end: 20210904

REACTIONS (2)
  - Thrombocytopenia [None]
  - Liver function test increased [None]

NARRATIVE: CASE EVENT DATE: 20210904
